FAERS Safety Report 24792414 (Version 1)
Quarter: 2024Q4

REPORT INFORMATION
  Report Type: Other
  Country: FR (occurrence: FR)
  Receive Date: 20241231
  Receipt Date: 20241231
  Transmission Date: 20250114
  Serious: Yes (Other)
  Sender: ZYDUS PHARM
  Company Number: None

PATIENT

DRUGS (9)
  1. BISOPROLOL [Suspect]
     Active Substance: BISOPROLOL
     Indication: Wrong patient
     Dosage: 2.5 MILLIGRAM, 1 TOTAL
     Route: 048
     Dates: start: 20241106, end: 20241106
  2. RAMIPRIL [Suspect]
     Active Substance: RAMIPRIL
     Indication: Wrong patient
     Dosage: 2.5 MILLIGRAM, 1 TOTAL
     Route: 048
     Dates: start: 20241106, end: 20241106
  3. SERTRALINE [Suspect]
     Active Substance: SERTRALINE HYDROCHLORIDE
     Indication: Wrong patient
     Dosage: 50 MILLIGRAM, 1 TOTAL
     Route: 048
     Dates: start: 20241106, end: 20241106
  4. TRAMADOL [Suspect]
     Active Substance: TRAMADOL
     Indication: Wrong patient
     Dosage: 50 MILLIGRAM, 1 TOTAL
     Route: 048
     Dates: start: 20241106, end: 20241106
  5. AMLODIPINE BESYLATE [Suspect]
     Active Substance: AMLODIPINE BESYLATE
     Indication: Hypertension
     Dosage: 5 MILLIGRAM, 1 TOTAL
     Route: 048
     Dates: start: 20241106, end: 20241106
  6. CYAMEMAZINE [Suspect]
     Active Substance: CYAMEMAZINE
     Indication: Wrong patient
     Dosage: 12.5 MILLIGRAM, 1 TOTAL
     Route: 048
     Dates: start: 20241106, end: 20241106
  7. HALDOL [Suspect]
     Active Substance: HALOPERIDOL
     Indication: Wrong patient
     Dosage: 1 MILLIGRAM, 1 TOTAL
     Route: 048
     Dates: start: 20241106, end: 20241106
  8. TIAPRIDE HYDROCHLORIDE [Suspect]
     Active Substance: TIAPRIDE HYDROCHLORIDE
     Indication: Wrong patient
     Dosage: 50 MILLIGRAM, 1 TOTAL
     Route: 048
     Dates: start: 20241106, end: 20241106
  9. ELIQUIS [Suspect]
     Active Substance: APIXABAN
     Indication: Wrong patient
     Dosage: 2.5 MILLIGRAM, 1 TOTAL
     Route: 048
     Dates: start: 20241106, end: 20241106

REACTIONS (5)
  - Electrocardiogram QT prolonged [Recovered/Resolved]
  - Dysarthria [Recovered/Resolved]
  - Bradycardia [Recovered/Resolved]
  - Malaise [Recovered/Resolved]
  - Wrong patient [Recovered/Resolved]

NARRATIVE: CASE EVENT DATE: 20241106
